FAERS Safety Report 20983562 (Version 2)
Quarter: 2022Q3

REPORT INFORMATION
  Report Type: Spontaneous
  Country: US (occurrence: US)
  Receive Date: 20220620
  Receipt Date: 20220825
  Transmission Date: 20221027
  Serious: Yes (Other)
  Sender: FDA-Public Use
  Company Number: US-SA-SAC20220615002344

PATIENT
  Age: 58 Year
  Sex: Male

DRUGS (1)
  1. ZANTAC [Suspect]
     Active Substance: RANITIDINE HYDROCHLORIDE
     Indication: Dyspepsia
     Dosage: 150 MG, QW
     Route: 048
     Dates: start: 199501, end: 201905

REACTIONS (6)
  - Prostate cancer stage I [Unknown]
  - Disability [Unknown]
  - Anxiety [Unknown]
  - Pain [Unknown]
  - Injury [Unknown]
  - Anhedonia [Unknown]

NARRATIVE: CASE EVENT DATE: 20180116
